FAERS Safety Report 20541126 (Version 1)
Quarter: 2022Q1

REPORT INFORMATION
  Report Type: Spontaneous
  Country: NL (occurrence: NL)
  Receive Date: 20220302
  Receipt Date: 20220302
  Transmission Date: 20220423
  Serious: Yes (Hospitalization, Other)
  Sender: FDA-Public Use
  Company Number: None

PATIENT
  Sex: Female

DRUGS (3)
  1. TRAMADOL HYDROCHLORIDE [Suspect]
     Active Substance: TRAMADOL HYDROCHLORIDE
     Indication: Pancreatitis
     Dosage: 1 DOSAGE FORM, EVERY 8 HRS
     Route: 048
  2. MECLIZINE [Suspect]
     Active Substance: MECLIZINE HYDROCHLORIDE
     Indication: Pruritus
     Dosage: 1 DOSAGE FORM, EVERY 12 HRS
     Route: 063
     Dates: start: 20210902, end: 20210904
  3. BUPRENORPHINE [Suspect]
     Active Substance: BUPRENORPHINE
     Indication: Pancreatitis
     Route: 063
     Dates: start: 20210901, end: 20210904

REACTIONS (4)
  - Infantile apnoea [Unknown]
  - Somnolence neonatal [Unknown]
  - Exposure via breast milk [Unknown]
  - Oxygen saturation decreased [Unknown]
